FAERS Safety Report 6646063-4 (Version None)
Quarter: 2010Q1

REPORT INFORMATION
  Report Type: 
  Country: None (occurrence: None)
  Receive Date: 20100323
  Receipt Date: 20100317
  Transmission Date: 20100710
  Serious: Yes (Life-Threatening, Hospitalization)
  Sender: FDA-Public Use
  Company Number: PL-ELI_LILLY_AND_COMPANY-PL200906004558

PATIENT
  Sex: Female
  Weight: 40 kg

DRUGS (5)
  1. PEMETREXED [Suspect]
     Indication: HEAD AND NECK CANCER
     Dosage: 500 MG/M2, UNKNOWN
     Dates: start: 20090603
  2. CISPLATIN [Suspect]
     Indication: HEAD AND NECK CANCER
     Dosage: 75 MG/M2, DAY 1 EVERY 21 DAYS
     Dates: start: 20090603
  3. FOLIC ACID [Concomitant]
     Indication: PROPHYLAXIS
     Dosage: 400 UG, DAILY (1/D)
     Route: 048
     Dates: start: 20090525, end: 20090613
  4. VITAMIN B-12 [Concomitant]
     Indication: PROPHYLAXIS
     Dosage: 1000 UG, ONCE
     Route: 030
     Dates: start: 20090601, end: 20090601
  5. DEXAMETHASONE [Concomitant]
     Indication: PROPHYLAXIS
     Dates: start: 20090501, end: 20090614

REACTIONS (6)
  - DECREASED APPETITE [None]
  - DEHYDRATION [None]
  - LEUKOPENIA [None]
  - PERFORMANCE STATUS DECREASED [None]
  - THROMBOCYTOPENIA [None]
  - TONGUE NEOPLASM MALIGNANT STAGE UNSPECIFIED [None]
